FAERS Safety Report 6508516 (Version 2)
Quarter: 2012Q4

REPORT INFORMATION
  Report Type: 
  Country: US (occurrence: US)
  Receive Date: 20071218
  Receipt Date: 20121219
  Transmission Date: 20130627
  Serious: Yes (Hospitalization, Other)
  Sender: FDA-Public Use
  Company Number: US-RANBAXY-2007US-12106

PATIENT
  Age: 39 Year
  Sex: Male

DRUGS (3)
  1. LORAZEPAM [Suspect]
     Indication: SEDATION
     Dosage: UNK
     Route: 042
  2. ESMOLOL [Suspect]
     Indication: AORTIC INJURY
     Dosage: UNK
     Route: 042
  3. PROPYLENE GLYCOL [Suspect]
     Indication: PRODUCT USED FOR UNKNOWN INDICATION
     Dosage: UNK
     Route: 042

REACTIONS (3)
  - Metabolic acidosis [Recovered/Resolved]
  - Renal impairment [Recovered/Resolved]
  - Toxicity to various agents [Recovered/Resolved]
